FAERS Safety Report 14111767 (Version 2)
Quarter: 2018Q1

REPORT INFORMATION
  Report Type: Report from Study
  Country: JP (occurrence: JP)
  Receive Date: 20171020
  Receipt Date: 20180101
  Transmission Date: 20180508
  Serious: Yes (Other)
  Sender: FDA-Public Use
  Company Number: JP-BEH-2017084540

PATIENT
  Age: 1 Year
  Sex: Male
  Weight: 7.1 kg

DRUGS (28)
  1. HIZENTRA [Suspect]
     Active Substance: HUMAN IMMUNOGLOBULIN G
     Dosage: 10 ML, TOT
     Route: 065
     Dates: start: 20170323, end: 20170323
  2. HIZENTRA [Suspect]
     Active Substance: HUMAN IMMUNOGLOBULIN G
     Dosage: 10 ML, TOT
     Route: 065
     Dates: start: 20170418, end: 20170418
  3. HIZENTRA [Suspect]
     Active Substance: HUMAN IMMUNOGLOBULIN G
     Dosage: 10 ML, TOT
     Route: 065
     Dates: start: 20170501, end: 20170501
  4. WIDECILLIN                         /00249602/ [Concomitant]
     Dosage: UNK
     Route: 048
     Dates: start: 20170418, end: 20170424
  5. HIZENTRA [Suspect]
     Active Substance: HUMAN IMMUNOGLOBULIN G
     Indication: END STAGE RENAL DISEASE
     Dosage: 5 ML, TOT
     Route: 065
     Dates: start: 20161214, end: 20161214
  6. HIZENTRA [Suspect]
     Active Substance: HUMAN IMMUNOGLOBULIN G
     Dosage: 10 ML, TOT
     Route: 065
     Dates: start: 20170111, end: 20170111
  7. CEFACLOR. [Concomitant]
     Active Substance: CEFACLOR
     Dosage: UNK
     Route: 048
  8. SYNAGIS [Concomitant]
     Active Substance: PALIVIZUMAB
     Indication: PROPHYLAXIS
     Dosage: UNK
     Route: 065
     Dates: end: 20170309
  9. GLUCONSAN K [Concomitant]
     Active Substance: POTASSIUM GLUCONATE
     Dosage: UNK
     Route: 048
     Dates: start: 20170309
  10. CARBOCISTEINE [Concomitant]
     Active Substance: CARBOCYSTEINE
     Dosage: UNK
     Route: 048
     Dates: start: 20170418, end: 20170424
  11. HOKUNALIN                          /00654901/ [Concomitant]
     Active Substance: TULOBUTEROL
     Dosage: UNK
     Route: 065
     Dates: start: 20170323, end: 20170330
  12. HIZENTRA [Suspect]
     Active Substance: HUMAN IMMUNOGLOBULIN G
     Dosage: 2 G (10ML), TOT
     Route: 058
     Dates: start: 20161226, end: 20161226
  13. HIZENTRA [Suspect]
     Active Substance: HUMAN IMMUNOGLOBULIN G
     Dosage: 10 ML, TOT
     Route: 065
     Dates: start: 20170223, end: 20170223
  14. ALFAROL [Concomitant]
     Active Substance: ALFACALCIDOL
     Dosage: UNK
     Route: 048
  15. NESP [Concomitant]
     Active Substance: DARBEPOETIN ALFA
     Dosage: UNK
     Route: 065
  16. HIZENTRA [Suspect]
     Active Substance: HUMAN IMMUNOGLOBULIN G
     Indication: SECONDARY IMMUNODEFICIENCY
     Dosage: 5 ML, TOT
     Route: 065
     Dates: start: 20161130, end: 20161130
  17. HIZENTRA [Suspect]
     Active Substance: HUMAN IMMUNOGLOBULIN G
     Dosage: 10 ML, TOT
     Route: 065
     Dates: start: 20170309, end: 20170309
  18. CALTAN [Concomitant]
     Active Substance: CALCIUM CARBONATE
     Dosage: UNK
     Route: 048
  19. MUCOSAL                            /00082801/ [Concomitant]
     Dosage: UNK
     Route: 048
     Dates: start: 20170323, end: 20170330
  20. HIZENTRA [Suspect]
     Active Substance: HUMAN IMMUNOGLOBULIN G
     Dosage: 10 ML, TOT
     Route: 065
     Dates: start: 20170209, end: 20170209
  21. HIZENTRA [Suspect]
     Active Substance: HUMAN IMMUNOGLOBULIN G
     Dosage: 10 ML, TOT
     Route: 065
     Dates: start: 20170126, end: 20170126
  22. MEIACT [Concomitant]
     Active Substance: CEFDITOREN PIVOXIL
     Dosage: UNK
     Route: 048
     Dates: start: 20161116, end: 20161130
  23. CARBOCISTEINE [Concomitant]
     Active Substance: CARBOCYSTEINE
     Dosage: UNK
     Route: 048
     Dates: start: 20170323, end: 20170330
  24. PRANLUKAST [Concomitant]
     Active Substance: PRANLUKAST
     Dosage: UNK
     Route: 048
     Dates: start: 20170323, end: 20170330
  25. HIZENTRA [Suspect]
     Active Substance: HUMAN IMMUNOGLOBULIN G
     Indication: HYPOGAMMAGLOBULINAEMIA
     Dosage: 5 ML, TOT
     Route: 065
     Dates: start: 20161116, end: 20161116
  26. HIZENTRA [Suspect]
     Active Substance: HUMAN IMMUNOGLOBULIN G
     Dosage: 10 ML, TOT
     Route: 065
     Dates: start: 20170406, end: 20170406
  27. INCREMIN                           /00023544/ [Concomitant]
     Dosage: UNK
     Route: 048
  28. MUCOSAL                            /00082801/ [Concomitant]
     Dosage: UNK
     Route: 065
     Dates: start: 20170418, end: 20170424

REACTIONS (2)
  - Injection site induration [Recovered/Resolved]
  - Otitis media acute [Recovered/Resolved]

NARRATIVE: CASE EVENT DATE: 20161226
